FAERS Safety Report 8836613 (Version 1)
Quarter: 2012Q4

REPORT INFORMATION
  Report Type: Spontaneous
  Country: VE (occurrence: None)
  Receive Date: 20121009
  Receipt Date: 20121009
  Transmission Date: 20130627
  Serious: Yes (Other)
  Sender: FDA-Public Use
  Company Number: VE-MACLEODS PHARMA-000027

PATIENT
  Age: 35 Year
  Sex: Female

DRUGS (7)
  1. PANTOPRAZOLE (PANTOPRAZOLE) [Suspect]
  2. PINAVERIUM BROMIDE [Concomitant]
  3. BROMIDE (PINAVERIUM BROMIDE) [Concomitant]
  4. POLYETHYLENE [Concomitant]
  5. GLYCOL (POLYETHLENE GLYCOL) [Concomitant]
  6. DILTIAZEM (DILTIAZEM) [Concomitant]
  7. SIMETHICONE (SIMETHICONE) [Concomitant]

REACTIONS (3)
  - Dermatitis exfoliative [None]
  - Skin exfoliation [None]
  - Skin test positive [None]
